FAERS Safety Report 7849224-1 (Version None)
Quarter: 2011Q4

REPORT INFORMATION
  Report Type: 
  Country: None (occurrence: None)
  Receive Date: 20111021
  Receipt Date: 20111011
  Transmission Date: 20120403
  Serious: Yes (Other)
  Sender: FDA-Public Use
  Company Number: 1000024710

PATIENT
  Age: 54 Year
  Sex: Male
  Weight: 107 kg

DRUGS (1)
  1. SAVELLA [Suspect]
     Indication: MENTAL DISORDER
     Dosage: 1 MG (1 MG, 1 IN 1 D), ORAL
     Route: 048
     Dates: start: 20100322, end: 20100323

REACTIONS (2)
  - FEELING DRUNK [None]
  - BALANCE DISORDER [None]
